FAERS Safety Report 5719697-9 (Version None)
Quarter: 2008Q2

REPORT INFORMATION
  Report Type: 
  Country: None (occurrence: None)
  Receive Date: 20080425
  Receipt Date: 20080425
  Transmission Date: 20081010
  Serious: Yes (Hospitalization)
  Sender: FDA-Public Use
  Company Number: None

PATIENT
  Sex: Male

DRUGS (28)
  1. NEXAVAR [Suspect]
     Indication: MALIGNANT MELANOMA
     Dosage: 200 MG BID PO
     Route: 048
     Dates: start: 20080422
  2. DIFLUCAN [Concomitant]
  3. AUGMENTIN '125' [Concomitant]
  4. ZOFRAN [Concomitant]
  5. SORAFENIB [Concomitant]
  6. CITALOPRAM HYDROBROMIDE [Concomitant]
  7. LASIX [Concomitant]
  8. LISINOPRIL [Concomitant]
  9. GLYBURIDE [Concomitant]
  10. DOXAZOSIN MESYLATE [Concomitant]
  11. METOPROLOL TARTRATE [Concomitant]
  12. ATIVAN [Concomitant]
  13. VANCOMYCIN [Concomitant]
  14. NYSTATIN [Concomitant]
  15. LOTRISONE [Concomitant]
  16. PRILOSEC [Concomitant]
  17. AVANDIA [Concomitant]
  18. PROCRIT [Concomitant]
  19. AMOXICILLIN-POT CLAVULANATE [Concomitant]
  20. FLUCONAZOLE [Concomitant]
  21. LACTATED RINGER'S [Concomitant]
  22. FLUCONAZOLE IN NACL 0.9% [Concomitant]
  23. PROTONIX [Concomitant]
  24. PIPERACILLIN-TAZO [Concomitant]
  25. COLACE [Concomitant]
  26. CIPROFLOXACIN [Concomitant]
  27. INSULIN SLIDING SCALE [Concomitant]
  28. LACTATED RINGER'S [Concomitant]

REACTIONS (13)
  - ANAEMIA [None]
  - ARTHRALGIA [None]
  - DEHYDRATION [None]
  - DIARRHOEA [None]
  - DRY SKIN [None]
  - FATIGUE [None]
  - HEADACHE [None]
  - LYMPHOEDEMA [None]
  - PAIN IN EXTREMITY [None]
  - PERIPHERAL MOTOR NEUROPATHY [None]
  - SKIN EXFOLIATION [None]
  - SKIN INFECTION [None]
  - SKIN ULCER [None]
